FAERS Safety Report 24431846 (Version 2)
Quarter: 2024Q4

REPORT INFORMATION
  Report Type: Spontaneous
  Country: GB (occurrence: GB)
  Receive Date: 20241014
  Receipt Date: 20241016
  Transmission Date: 20250115
  Serious: No
  Sender: ABBVIE
  Company Number: GB-ABBVIE-5959586

PATIENT
  Sex: Male

DRUGS (1)
  1. RINVOQ [Suspect]
     Active Substance: UPADACITINIB
     Indication: Colitis ulcerative
     Route: 048
     Dates: start: 202405

REACTIONS (4)
  - Inflammatory bowel disease [Not Recovered/Not Resolved]
  - Product residue present [Not Recovered/Not Resolved]
  - Therapeutic product effect incomplete [Not Recovered/Not Resolved]
  - Malabsorption [Not Recovered/Not Resolved]

NARRATIVE: CASE EVENT DATE: 20240101
